FAERS Safety Report 6359349-8 (Version None)
Quarter: 2009Q3

REPORT INFORMATION
  Report Type: 
  Country: None (occurrence: None)
  Receive Date: 20090917
  Receipt Date: 20090915
  Transmission Date: 20100115
  Serious: Yes (Hospitalization)
  Sender: FDA-Public Use
  Company Number: PL-BRISTOL-MYERS SQUIBB COMPANY-14779367

PATIENT
  Age: 4 Decade
  Sex: Male
  Weight: 160 kg

DRUGS (1)
  1. ABILIFY [Suspect]

REACTIONS (1)
  - THROMBOSIS [None]
